FAERS Safety Report 7776888-3 (Version None)
Quarter: 2011Q3

REPORT INFORMATION
  Report Type: 
  Country: None (occurrence: None)
  Receive Date: 20110923
  Receipt Date: 20110923
  Transmission Date: 20111222
  Serious: Yes (Hospitalization)
  Sender: FDA-Public Use
  Company Number: None

PATIENT
  Age: 91 Year
  Sex: Male
  Weight: 91.5 kg

DRUGS (2)
  1. SULFAMETHOXAZOLE AND TRIMETHOPRIM [Suspect]
     Indication: URINARY TRACT INFECTION
     Dosage: 800/160 MG BID PO
     Route: 048
     Dates: start: 20110505, end: 20110512
  2. ACETAMINOPHEN AND HYDROCODONE BITARTRATE [Suspect]
     Indication: PAIN
     Dosage: 7.5/500 MG TID PO
     Route: 048
     Dates: start: 20110330

REACTIONS (5)
  - LIVER INJURY [None]
  - DEHYDRATION [None]
  - RENAL FAILURE CHRONIC [None]
  - MALAISE [None]
  - RENAL INJURY [None]
